FAERS Safety Report 7081837-X (Version None)
Quarter: 2010Q4

REPORT INFORMATION
  Report Type: 
  Country: None (occurrence: None)
  Receive Date: 20101103
  Receipt Date: 20101028
  Transmission Date: 20110411
  Serious: Yes (Life-Threatening, Other)
  Sender: FDA-Public Use
  Company Number: US-GENZYME-HECT-1000095

PATIENT
  Sex: Male
  Weight: 85.5 kg

DRUGS (7)
  1. HECTOROL [Suspect]
     Indication: HYPERPARATHYROIDISM SECONDARY
     Dosage: 2 MCG, 3X/W
     Route: 042
     Dates: start: 20100929
  2. CARVEDILOL [Concomitant]
     Dosage: UNK
     Route: 065
  3. SILDENAFIL CITRATE [Concomitant]
     Dosage: UNK
     Route: 065
  4. EPOGEN [Concomitant]
     Route: 065
  5. VENOFER [Concomitant]
     Route: 065
  6. INSULIN [Concomitant]
     Dosage: UNK
     Route: 065
  7. MILRINONE [Concomitant]
     Route: 065

REACTIONS (1)
  - CARDIOPULMONARY FAILURE [None]
